FAERS Safety Report 21285145 (Version 1)
Quarter: 2022Q3

REPORT INFORMATION
  Report Type: Report from Study
  Country: SE (occurrence: SE)
  Receive Date: 20220902
  Receipt Date: 20220902
  Transmission Date: 20221027
  Serious: Yes (Other)
  Sender: FDA-Public Use
  Company Number: SE-SA-2022SA340304

PATIENT
  Age: 76 Year
  Sex: Male

DRUGS (4)
  1. HYDROXYUREA [Suspect]
     Active Substance: HYDROXYUREA
     Indication: Acute myeloid leukaemia
     Dosage: 1000 MG, BID; HYDROXYUREA 1000 MG BID WAS GIVEN 1 HOUR PRIOR TO THE START OF THE FIRST CYTARABINE IN
     Route: 065
  2. DAUNORUBICIN [Suspect]
     Active Substance: DAUNORUBICIN
     Indication: Acute myeloid leukaemia
     Dosage: 60 MG/M2/8 H I.V. Q.D., ON DAY 1-3 DURING CYCLES 1 AND 2, AND ON DAY 1-2 DURING CYCLE 3
     Route: 042
  3. CYTARABINE [Suspect]
     Active Substance: CYTARABINE
     Indication: Acute myeloid leukaemia
     Dosage: 1G/M2 /2 H I.V. B.I.D. D1-5, I.E. A TOTAL OF 10/M2 G PER COURSE
     Route: 042
  4. MIDOSTAURIN [Concomitant]
     Active Substance: MIDOSTAURIN
     Indication: Acute myeloid leukaemia
     Dosage: 50 MG, BID ON DAY 8-21 OF EACH CYCLE.

REACTIONS (3)
  - Febrile neutropenia [Recovered/Resolved]
  - Sepsis [Unknown]
  - Intentional product use issue [Unknown]
